FAERS Safety Report 8681081 (Version 2)
Quarter: 2013Q2

REPORT INFORMATION
  Report Type: Spontaneous
  Country: US (occurrence: US)
  Receive Date: 20120724
  Receipt Date: 20130415
  Transmission Date: 20140414
  Serious: Yes (Other)
  Sender: FDA-Public Use
  Company Number: US-RB-042562-12

PATIENT
  Age: 34 Year
  Sex: Female

DRUGS (4)
  1. SUBOXONE FILM [Suspect]
     Indication: DRUG DEPENDENCE
     Route: 060
     Dates: end: 2012
  2. SUBOXONE FILM [Suspect]
     Route: 050
     Dates: start: 201108, end: 20120506
  3. SUBOXONE FILM [Suspect]
     Indication: DRUG DEPENDENCE
     Dosage: 1-2 MG DAILY
     Route: 060
     Dates: start: 2012
  4. NICOTINE [Suspect]
     Indication: NICOTINE DEPENDENCE
     Dosage: 3-4 CIGARETTES DAILY DURING PREGNANCY
     Route: 065

REACTIONS (6)
  - Cardiac failure congestive [Recovered/Resolved]
  - Postpartum haemorrhage [Recovered/Resolved]
  - Exposure during pregnancy [Recovered/Resolved]
  - Exposure via body fluid [Recovered/Resolved]
  - Wrong technique in drug usage process [Recovered/Resolved]
  - Oedema peripheral [Recovered/Resolved]
